FAERS Safety Report 25759459 (Version 1)
Quarter: 2025Q3

REPORT INFORMATION
  Report Type: Other
  Country: CA (occurrence: CA)
  Receive Date: 20250904
  Receipt Date: 20250904
  Transmission Date: 20251021
  Serious: Yes (Life-Threatening, Hospitalization, Other)
  Sender: APOTEX
  Company Number: CA-PGRTD-001146486

PATIENT
  Age: 93 Year
  Sex: Male

DRUGS (1)
  1. APIXABAN [Suspect]
     Active Substance: APIXABAN
     Indication: Thrombosis prophylaxis
     Route: 065

REACTIONS (5)
  - Transfusion [Unknown]
  - Circulatory collapse [Unknown]
  - Melaena [Unknown]
  - Anaemia [Unknown]
  - Gastrointestinal haemorrhage [Unknown]
